FAERS Safety Report 17030650 (Version 1)
Quarter: 2019Q4

REPORT INFORMATION
  Report Type: Report from Study
  Country: US (occurrence: US)
  Receive Date: 20191114
  Receipt Date: 20191114
  Transmission Date: 20200122
  Serious: Yes (Hospitalization, Other)
  Sender: FDA-Public Use
  Company Number: US-GILEAD-2019-0437527

PATIENT
  Age: 63 Year
  Sex: Female

DRUGS (1)
  1. AMBRISENTAN [Suspect]
     Active Substance: AMBRISENTAN
     Indication: PULMONARY HYPERTENSION
     Dosage: 10 MG, QD
     Route: 065

REACTIONS (3)
  - Coronary arterial stent insertion [Recovered/Resolved]
  - Unevaluable event [Recovered/Resolved]
  - Intentional dose omission [Not Recovered/Not Resolved]
